FAERS Safety Report 16212010 (Version 1)
Quarter: 2019Q2

REPORT INFORMATION
  Report Type: Spontaneous
  Country: US (occurrence: US)
  Receive Date: 20190417
  Receipt Date: 20190417
  Transmission Date: 20190711
  Serious: Yes (Hospitalization)
  Sender: FDA-Public Use
  Company Number: None

PATIENT
  Age: 73 Year
  Sex: Female

DRUGS (14)
  1. TYMLOS [Suspect]
     Active Substance: ABALOPARATIDE
     Indication: SENILE OSTEOPOROSIS
     Route: 058
  2. LOSARTAN. [Concomitant]
     Active Substance: LOSARTAN
     Dates: start: 20180502
  3. PRILOSEC [Concomitant]
     Active Substance: OMEPRAZOLE MAGNESIUM
     Dates: start: 20180502
  4. DICLOFENAC [Concomitant]
     Active Substance: DICLOFENAC
     Dates: start: 20180502
  5. LEVOTHYROXINE. [Concomitant]
     Active Substance: LEVOTHYROXINE
     Dates: start: 20180502
  6. PREDNISONE. [Concomitant]
     Active Substance: PREDNISONE
     Dates: start: 20180502
  7. AMLODIPINE [Concomitant]
     Active Substance: AMLODIPINE BESYLATE
     Dates: start: 20180502
  8. NEURONTIN [Concomitant]
     Active Substance: GABAPENTIN
     Dates: start: 20180502
  9. HYDROXYCHLOROQUINE [Concomitant]
     Active Substance: HYDROXYCHLOROQUINE
     Dates: start: 20180502
  10. ZANAFLEX [Concomitant]
     Active Substance: TIZANIDINE HYDROCHLORIDE
     Dates: start: 20180502
  11. CYMBALTA [Concomitant]
     Active Substance: DULOXETINE HYDROCHLORIDE
     Dates: start: 20180502
  12. LOVASTATIN. [Concomitant]
     Active Substance: LOVASTATIN
     Dates: start: 20180502
  13. CLONAZEPAM. [Concomitant]
     Active Substance: CLONAZEPAM
     Dates: start: 20180502
  14. VALTREX [Concomitant]
     Active Substance: VALACYCLOVIR HYDROCHLORIDE
     Dates: start: 20180502

REACTIONS (2)
  - Spinal operation [None]
  - Therapy cessation [None]

NARRATIVE: CASE EVENT DATE: 20190321
